FAERS Safety Report 15274093 (Version 1)
Quarter: 2018Q3

REPORT INFORMATION
  Report Type: Report from Study
  Country: None (occurrence: BR)
  Receive Date: 20180814
  Receipt Date: 20180814
  Transmission Date: 20181010
  Serious: Yes (Hospitalization, Other)
  Sender: FDA-Public Use
  Company Number: BR-ABBVIE-18K-020-2446732-00

PATIENT
  Age: 38 Year
  Sex: Male
  Weight: 68 kg

DRUGS (4)
  1. NIMESULIDE [Concomitant]
     Active Substance: NIMESULIDE
     Indication: RHEUMATIC DISORDER
  2. VITAMIN D [Concomitant]
     Active Substance: CHOLECALCIFEROL
     Indication: OSTEOPOROSIS
  3. HUMIRA [Suspect]
     Active Substance: ADALIMUMAB
     Indication: ANKYLOSING SPONDYLITIS
     Route: 058
     Dates: start: 20160401
  4. PREDNISONE. [Concomitant]
     Active Substance: PREDNISONE
     Indication: RHEUMATIC DISORDER

REACTIONS (11)
  - Pneumonia [Recovered/Resolved]
  - Insomnia [Unknown]
  - Choking [Unknown]
  - Memory impairment [Unknown]
  - Injection site pain [Unknown]
  - Lung disorder [Not Recovered/Not Resolved]
  - Gastric disorder [Unknown]
  - Gastrooesophageal reflux disease [Unknown]
  - Oesophageal disorder [Not Recovered/Not Resolved]
  - Wrong technique in product usage process [Unknown]
  - Tuberculosis [Unknown]

NARRATIVE: CASE EVENT DATE: 201806
